FAERS Safety Report 7958097-8 (Version None)
Quarter: 2011Q4

REPORT INFORMATION
  Report Type: 
  Country: None (occurrence: None)
  Receive Date: 20111205
  Receipt Date: 20111122
  Transmission Date: 20120403
  Serious: Yes (Other)
  Sender: FDA-Public Use
  Company Number: GB-MYLANLABS-2011S1024261

PATIENT
  Age: 49 Year
  Sex: Male
  Weight: 90.5 kg

DRUGS (7)
  1. NAPROXEN [Suspect]
     Indication: PRODUCT USED FOR UNKNOWN INDICATION
     Dates: start: 20111116
  2. ALLOPURINOL [Concomitant]
     Dates: start: 20110823, end: 20110920
  3. AMLODIPINE [Concomitant]
     Indication: PRODUCT USED FOR UNKNOWN INDICATION
     Dates: start: 20011006
  4. AMLODIPINE [Concomitant]
     Dates: start: 20010823, end: 20110920
  5. ALLOPURINOL [Concomitant]
     Indication: PRODUCT USED FOR UNKNOWN INDICATION
     Dates: start: 20111104
  6. GAVISCON [Concomitant]
     Indication: PRODUCT USED FOR UNKNOWN INDICATION
     Dates: start: 20110823, end: 20110829
  7. OMEPRAZOLE [Concomitant]
     Indication: PRODUCT USED FOR UNKNOWN INDICATION
     Dates: start: 20110823, end: 20110920

REACTIONS (3)
  - EYE SWELLING [None]
  - EYE PRURITUS [None]
  - EYELID OEDEMA [None]
